FAERS Safety Report 14093273 (Version 4)
Quarter: 2018Q2

REPORT INFORMATION
  Report Type: Report from Study
  Country: US (occurrence: US)
  Receive Date: 20171016
  Receipt Date: 20180608
  Transmission Date: 20180711
  Serious: Yes (Death, Other)
  Sender: FDA-Public Use
  Company Number: US-REGENERON PHARMACEUTICALS, INC.-2017-24090

PATIENT

DRUGS (6)
  1. DIGOXIN. [Concomitant]
     Active Substance: DIGOXIN
     Indication: PRODUCT USED FOR UNKNOWN INDICATION
     Dosage: 125 MCG, TIW (THRICE IN A WEEK)
  2. LASIX [Concomitant]
     Active Substance: FUROSEMIDE
     Indication: PRODUCT USED FOR UNKNOWN INDICATION
     Dosage: 20 MG, TID
  3. EYLEA [Suspect]
     Active Substance: AFLIBERCEPT
     Indication: MACULAR DEGENERATION
     Dosage: 2 MG/ 0.5 ML Q4-6 WEEKS, RIGHT EYE
     Route: 031
     Dates: start: 20170627, end: 20170810
  4. DIOVAN [Concomitant]
     Active Substance: VALSARTAN
     Indication: PRODUCT USED FOR UNKNOWN INDICATION
     Dosage: 80 MG, QD
  5. ASA [Concomitant]
     Active Substance: ASPIRIN
     Indication: PRODUCT USED FOR UNKNOWN INDICATION
     Dosage: 81 MG, UNK
  6. DILTIAZEM. [Concomitant]
     Active Substance: DILTIAZEM
     Indication: PRODUCT USED FOR UNKNOWN INDICATION
     Dosage: 30 MG, BID

REACTIONS (1)
  - Fall [Fatal]

NARRATIVE: CASE EVENT DATE: 20170810
